FAERS Safety Report 4750997-5 (Version None)
Quarter: 2005Q3

REPORT INFORMATION
  Report Type: 
  Country: None (occurrence: None)
  Receive Date: 20050822
  Receipt Date: 20050812
  Transmission Date: 20060218
  Serious: Yes (Hospitalization, Other)
  Sender: FDA-Public Use
  Company Number: 2005114646

PATIENT
  Age: 42 Year
  Sex: Male
  Weight: 70.3075 kg

DRUGS (2)
  1. CELEBREX [Suspect]
     Indication: CHEST PAIN
     Dosage: (200 MG, PRN)
     Dates: start: 20050301
  2. TYLENOL [Concomitant]

REACTIONS (5)
  - CHEST PAIN [None]
  - COMMUNICATION DISORDER [None]
  - DRUG INEFFECTIVE [None]
  - HYPOAESTHESIA [None]
  - PARAESTHESIA [None]
